FAERS Safety Report 16351444 (Version 2)
Quarter: 2019Q3

REPORT INFORMATION
  Report Type: Report from Study
  Country: US (occurrence: US)
  Receive Date: 20190524
  Receipt Date: 20190819
  Transmission Date: 20191004
  Serious: Yes (Hospitalization, Other)
  Sender: FDA-Public Use
  Company Number: US-ROCHE-2322357

PATIENT
  Sex: Male

DRUGS (8)
  1. RITUXIMAB. [Suspect]
     Active Substance: RITUXIMAB
     Indication: CHRONIC LYMPHOCYTIC LEUKAEMIA
     Dosage: 6 TREATMENTS (1 DOSAGE FORMS,1 IN 28 D
     Route: 065
     Dates: start: 20161101
  2. BENDAMUSTINE [Concomitant]
     Active Substance: BENDAMUSTINE
  3. VENETOCLAX. [Suspect]
     Active Substance: VENETOCLAX
     Indication: CHRONIC LYMPHOCYTIC LEUKAEMIA
     Dosage: ONGOING: YES
     Route: 048
     Dates: start: 20180710, end: 20190415
  4. ADALIMUMAB [Suspect]
     Active Substance: ADALIMUMAB
     Indication: COLITIS ULCERATIVE
     Dosage: ONCE IN 18 DAY
     Route: 058
     Dates: start: 2009
  5. ENTYVIO [Concomitant]
     Active Substance: VEDOLIZUMAB
     Indication: COLITIS ULCERATIVE
  6. VENETOCLAX. [Suspect]
     Active Substance: VENETOCLAX
     Dosage: ONGOING: YES
     Route: 048
     Dates: start: 20180610
  7. PREDNISONE. [Concomitant]
     Active Substance: PREDNISONE
  8. RITUXIMAB. [Suspect]
     Active Substance: RITUXIMAB
     Route: 065
     Dates: start: 20180601

REACTIONS (24)
  - Prostatic specific antigen increased [Not Recovered/Not Resolved]
  - Oropharyngeal pain [Not Recovered/Not Resolved]
  - Malaise [Recovered/Resolved]
  - Hormone-refractory prostate cancer [Not Recovered/Not Resolved]
  - Bursitis [Not Recovered/Not Resolved]
  - Skin mass [Recovering/Resolving]
  - Axillary mass [Recovered/Resolved]
  - Haemoglobin decreased [Recovered/Resolved]
  - Dyspnoea [Unknown]
  - Lymphocyte count decreased [Not Recovered/Not Resolved]
  - Fungal skin infection [Recovered/Resolved]
  - Lymphadenopathy [Recovered/Resolved]
  - Muscular weakness [Recovering/Resolving]
  - Rash [Recovering/Resolving]
  - Prostate cancer stage IV [Not Recovered/Not Resolved]
  - Neutrophil count increased [Not Recovered/Not Resolved]
  - Mass [Unknown]
  - Chronic lymphocytic leukaemia [Recovering/Resolving]
  - Squamous cell carcinoma of skin [Not Recovered/Not Resolved]
  - Blood glucose increased [Not Recovered/Not Resolved]
  - Nausea [Recovered/Resolved]
  - Nasopharyngitis [Not Recovered/Not Resolved]
  - Interstitial lung disease [Not Recovered/Not Resolved]
  - Myalgia [Recovering/Resolving]

NARRATIVE: CASE EVENT DATE: 2009
